FAERS Safety Report 9873739 (Version 2)
Quarter: 2014Q1

REPORT INFORMATION
  Report Type: Other
  Country: US (occurrence: US)
  Receive Date: 20140206
  Receipt Date: 20140206
  Transmission Date: 20141002
  Serious: No
  Sender: FDA-Public Use
  Company Number: US-ACORDA-ACO_33821_2013

PATIENT
  Age: 47 Year
  Sex: Male
  Weight: 70.3 kg

DRUGS (5)
  1. AMPYRA [Suspect]
     Indication: MULTIPLE SCLEROSIS
     Dosage: 10 MG, BID
     Route: 048
     Dates: start: 2010
  2. AMPYRA [Suspect]
     Dosage: UNK
     Dates: start: 20130125
  3. VICODIN [Concomitant]
     Indication: PAIN
     Dosage: 7.5/750 MG BID
     Route: 048
  4. AMANTADINE HCL [Concomitant]
     Indication: FATIGUE
     Dosage: 100 MG, UNK
     Route: 048
  5. PERCOCET [Concomitant]
     Indication: PRODUCT USED FOR UNKNOWN INDICATION
     Dosage: 5-325 MG PRN
     Route: 048

REACTIONS (3)
  - Gait disturbance [Recovering/Resolving]
  - Asthenia [Recovering/Resolving]
  - Multiple sclerosis relapse [Unknown]
